FAERS Safety Report 10270101 (Version 1)
Quarter: 2014Q2

REPORT INFORMATION
  Report Type: Spontaneous
  Country: CA (occurrence: None)
  Receive Date: 20140625
  Receipt Date: 20140625
  Transmission Date: 20141212
  Serious: Yes (Other)
  Sender: FDA-Public Use
  Company Number: FK201402407

PATIENT
  Age: 72 Year
  Sex: Female

DRUGS (5)
  1. AZITHROMYCIN (MANUFACTURER UNKNOWN) (AZITHROMYCIN) (AZITHROMYCIN) [Suspect]
     Indication: ATYPICAL MYCOBACTERIAL INFECTION
     Dosage: STARTED TREATMENT 4 MONTHS PRI
  2. PYRIDOXINE [Suspect]
     Indication: ATYPICAL MYCOBACTERIAL INFECTION
  3. ETHAMBUTOL (ETHAMBUTOL) [Suspect]
     Indication: ATYPICAL MYCOBACTERIAL INFECTION
  4. ISONIAZID (ISONIAZID) [Suspect]
     Indication: ATYPICAL MYCOBACTERIAL INFECTION
  5. RIFAMPICIN (RIFAMPICIN) [Suspect]
     Indication: ATYPICAL MYCOBACTERIAL INFECTION

REACTIONS (4)
  - Optic neuropathy [None]
  - Hemianopia heteronymous [None]
  - Pupillary light reflex tests abnormal [None]
  - Chromatopsia [None]
